FAERS Safety Report 5291363-6 (Version None)
Quarter: 2007Q2

REPORT INFORMATION
  Report Type: 
  Country: None (occurrence: None)
  Receive Date: 20070402
  Receipt Date: 20070320
  Transmission Date: 20071010
  Serious: Yes (Other)
  Sender: FDA-Public Use
  Company Number: 220001L07TUR

PATIENT
  Age: 10 Year
  Sex: Male

DRUGS (1)
  1. SAIZEN [Suspect]
     Indication: GROWTH HORMONE DEFICIENCY
     Dosage: 0.03 MG/KG, 1 IN 1 DAYS;

REACTIONS (2)
  - CEREBRAL HYPOPERFUSION [None]
  - TOURETTE'S DISORDER [None]
